FAERS Safety Report 8146344-1 (Version None)
Quarter: 2012Q1

REPORT INFORMATION
  Report Type: 
  Country: None (occurrence: None)
  Receive Date: 20120217
  Receipt Date: 20120215
  Transmission Date: 20120608
  Serious: Yes (Other)
  Sender: FDA-Public Use
  Company Number: AU-ROCHE-1029855

PATIENT
  Sex: Female
  Weight: 91 kg

DRUGS (6)
  1. ACTEMRA [Suspect]
     Indication: RHEUMATOID ARTHRITIS
     Route: 042
     Dates: start: 20100317
  2. LEVOTHYROXINE SODIUM [Concomitant]
  3. SANDOCAL [Concomitant]
  4. ACTEMRA [Suspect]
     Route: 042
     Dates: start: 20101012
  5. METHOTREXATE [Concomitant]
     Route: 048
  6. CALCITRIOL [Concomitant]

REACTIONS (2)
  - IMPAIRED HEALING [None]
  - THYROID CANCER [None]
